FAERS Safety Report 9758153 (Version 1)
Quarter: 2013Q4

REPORT INFORMATION
  Report Type: Spontaneous
  Country: US (occurrence: None)
  Receive Date: 20131213
  Receipt Date: 20131213
  Transmission Date: 20140711
  Serious: Yes (Life-Threatening, Hospitalization)
  Sender: FDA-Public Use
  Company Number: None

PATIENT
  Age: 66 Year
  Sex: Female
  Weight: 77.11 kg

DRUGS (1)
  1. XARELTO 20 MG JANSSEN [Suspect]
     Indication: ATRIAL FIBRILLATION
     Dosage: 1 PILL  ONCE DAILY  TAKEN BY MOUTH
     Route: 048
     Dates: start: 20130604, end: 20131113

REACTIONS (6)
  - Asthenia [None]
  - Fatigue [None]
  - Impaired driving ability [None]
  - Activities of daily living impaired [None]
  - Haemoglobin decreased [None]
  - Bone marrow failure [None]
